FAERS Safety Report 7123466-5 (Version None)
Quarter: 2010Q4

REPORT INFORMATION
  Report Type: 
  Country: None (occurrence: None)
  Receive Date: 20101125
  Receipt Date: 20101116
  Transmission Date: 20110411
  Serious: No
  Sender: FDA-Public Use
  Company Number: US-BIOGENIDEC-2010BI040818

PATIENT
  Age: 44 Year
  Sex: Male

DRUGS (2)
  1. AVONEX [Suspect]
     Indication: MULTIPLE SCLEROSIS
     Route: 030
     Dates: start: 20001116
  2. GABAPENTIN [Concomitant]
     Indication: PAIN

REACTIONS (4)
  - CHILLS [None]
  - FALL [None]
  - GAIT DISTURBANCE [None]
  - MUSCULOSKELETAL PAIN [None]
